FAERS Safety Report 13527352 (Version 2)
Quarter: 2017Q3

REPORT INFORMATION
  Report Type: Spontaneous
  Country: DE (occurrence: DE)
  Receive Date: 20170509
  Receipt Date: 20170706
  Transmission Date: 20171127
  Serious: Yes (Other)
  Sender: FDA-Public Use
  Company Number: PHHY2017DE068119

PATIENT
  Age: 43 Year
  Sex: Female
  Weight: 62 kg

DRUGS (3)
  1. TRIMIPRAMIN [Concomitant]
     Active Substance: TRIMIPRAMINE MALEATE
     Indication: DEPRESSION
     Dosage: 25 MG, QD
     Route: 048
     Dates: start: 20161110
  2. OPIPRAMOL [Concomitant]
     Active Substance: OPIPRAMOL
     Indication: DEPRESSION
     Dosage: 50 MG, QD
     Route: 048
     Dates: start: 20101217
  3. GILENYA [Suspect]
     Active Substance: FINGOLIMOD HYDROCHLORIDE
     Indication: MULTIPLE SCLEROSIS
     Dosage: 0.5 MG, QD
     Route: 048
     Dates: start: 20130507

REACTIONS (17)
  - Reticulocyte count increased [Unknown]
  - Iron binding capacity total increased [Unknown]
  - Platelet count decreased [Unknown]
  - Lymphocyte count decreased [Unknown]
  - Blood urea decreased [Unknown]
  - Blood immunoglobulin G increased [Unknown]
  - Aspartate aminotransferase increased [Unknown]
  - Spleen atrophy [Not Recovered/Not Resolved]
  - Blood immunoglobulin A increased [Unknown]
  - Blood immunoglobulin M increased [Unknown]
  - Blood folate increased [Unknown]
  - Haemoglobin decreased [Unknown]
  - Haematocrit increased [Unknown]
  - Serum ferritin decreased [Unknown]
  - Activated partial thromboplastin time prolonged [Unknown]
  - Blood glucose decreased [Unknown]
  - Eosinophil count increased [Unknown]

NARRATIVE: CASE EVENT DATE: 20161115
